FAERS Safety Report 13266012 (Version 1)
Quarter: 2017Q1

REPORT INFORMATION
  Report Type: Spontaneous
  Country: CN (occurrence: CN)
  Receive Date: 20170223
  Receipt Date: 20170223
  Transmission Date: 20170428
  Serious: Yes (Other)
  Sender: FDA-Public Use
  Company Number: PHHY2017CN012280

PATIENT
  Age: 47 Year
  Sex: Male

DRUGS (2)
  1. SEBIVO [Suspect]
     Active Substance: TELBIVUDINE
     Indication: HEPATITIS B
     Dosage: UNK
     Route: 048
     Dates: start: 20130618, end: 20141104
  2. THYMOPENTIN [Concomitant]
     Active Substance: THYMOPENTIN
     Indication: PRODUCT USED FOR UNKNOWN INDICATION
     Route: 065

REACTIONS (2)
  - Ascites [Recovering/Resolving]
  - Hepatic cancer [Recovering/Resolving]

NARRATIVE: CASE EVENT DATE: 20130924
